FAERS Safety Report 26015125 (Version 1)
Quarter: 2025Q4

REPORT INFORMATION
  Report Type: Spontaneous
  Country: US (occurrence: US)
  Receive Date: 20251109
  Receipt Date: 20251109
  Transmission Date: 20260118
  Serious: No
  Sender: CSL BEHRING
  Company Number: US-BEH-2025224190

PATIENT
  Sex: Female

DRUGS (2)
  1. HIZENTRA [Suspect]
     Active Substance: HUMAN IMMUNOGLOBULIN G
     Indication: Polyneuropathy
     Dosage: 20 G, TIW
     Route: 058
     Dates: start: 201907
  2. CRYSVITA [Concomitant]
     Active Substance: BUROSUMAB-TWZA

REACTIONS (2)
  - Akathisia [Unknown]
  - Restless legs syndrome [Unknown]
